FAERS Safety Report 5403719-9 (Version None)
Quarter: 2007Q3

REPORT INFORMATION
  Report Type: 
  Country: None (occurrence: None)
  Receive Date: 20070802
  Receipt Date: 20070725
  Transmission Date: 20080115
  Serious: Yes (Other)
  Sender: FDA-Public Use
  Company Number: US-JNJFOC-20070706493

PATIENT
  Sex: Male
  Weight: 81.65 kg

DRUGS (7)
  1. FENTANYL TRANSDERMAL SYSTEM [Suspect]
     Route: 062
  2. FENTANYL TRANSDERMAL SYSTEM [Suspect]
     Indication: PAIN
     Route: 062
  3. DILANTIN KAPSEAL [Concomitant]
     Indication: CONVULSION
     Route: 048
  4. PHENOBARBITAL TAB [Concomitant]
     Indication: CONVULSION
     Route: 048
  5. PHENERGAN HCL [Concomitant]
     Indication: GASTROINTESTINAL DISORDER
     Route: 048
  6. XANAX [Concomitant]
     Indication: NERVOUSNESS
     Route: 048
  7. PROTONIX [Concomitant]
     Indication: GASTROINTESTINAL DISORDER
     Route: 065

REACTIONS (8)
  - CONVULSION [None]
  - DECREASED APPETITE [None]
  - DEHYDRATION [None]
  - GASTROINTESTINAL CARCINOMA [None]
  - MUSCLE SPASMS [None]
  - VOMITING [None]
  - WEIGHT DECREASED [None]
  - WRONG TECHNIQUE IN DRUG USAGE PROCESS [None]
